FAERS Safety Report 24388731 (Version 3)
Quarter: 2024Q4

REPORT INFORMATION
  Report Type: Spontaneous
  Country: US (occurrence: US)
  Receive Date: 20241002
  Receipt Date: 20241030
  Transmission Date: 20250115
  Serious: Yes (Death, Hospitalization, Other)
  Sender: GILEAD
  Company Number: US-GILEAD-2024-0689614

PATIENT
  Age: 43 Year
  Sex: Male
  Weight: 63.8 kg

DRUGS (4)
  1. YESCARTA [Suspect]
     Active Substance: AXICABTAGENE CILOLEUCEL
     Indication: Diffuse large B-cell lymphoma
     Dosage: UNK
     Route: 042
     Dates: start: 20240903, end: 20240903
  2. KEPPRA [Concomitant]
     Active Substance: LEVETIRACETAM
     Dosage: UNK
     Dates: start: 20240911
  3. PROTONIX [Concomitant]
     Active Substance: PANTOPRAZOLE SODIUM
     Dosage: UNK
     Dates: start: 20240911
  4. NIVESTYM [FILGRASTIM] [Concomitant]
     Dosage: UNK
     Dates: start: 20240926

REACTIONS (8)
  - Pulseless electrical activity [Fatal]
  - Blood lactic acid increased [Unknown]
  - Pancytopenia [Not Recovered/Not Resolved]
  - Oesophagitis [Unknown]
  - Hypotension [Unknown]
  - Respiratory failure [Not Recovered/Not Resolved]
  - Febrile neutropenia [Unknown]
  - Escherichia sepsis [Fatal]

NARRATIVE: CASE EVENT DATE: 20240927
